FAERS Safety Report 19079103 (Version 1)
Quarter: 2021Q1

REPORT INFORMATION
  Report Type: Spontaneous
  Country: US (occurrence: US)
  Receive Date: 20210331
  Receipt Date: 20210331
  Transmission Date: 20210420
  Serious: Yes (Death, Life-Threatening, Hospitalization)
  Sender: FDA-Public Use
  Company Number: US-BEXIMCO-2021BEX00019

PATIENT
  Age: 57 Year
  Sex: Male

DRUGS (1)
  1. METFORMIN HYDROCHLORIDE. [Suspect]
     Active Substance: METFORMIN HYDROCHLORIDE
     Route: 065

REACTIONS (4)
  - Multiple organ dysfunction syndrome [Fatal]
  - Cardiac arrest [Recovered/Resolved]
  - Toxicity to various agents [Not Recovered/Not Resolved]
  - Lactic acidosis [Fatal]
